FAERS Safety Report 13401672 (Version 1)
Quarter: 2017Q2

REPORT INFORMATION
  Report Type: Spontaneous
  Country: ZA (occurrence: ZA)
  Receive Date: 20170404
  Receipt Date: 20170404
  Transmission Date: 20170830
  Serious: Yes (Other)
  Sender: FDA-Public Use
  Company Number: ZA-TEVA-756238ISR

PATIENT
  Age: 6 Decade
  Sex: Male

DRUGS (2)
  1. XELODA [Suspect]
     Active Substance: CAPECITABINE
  2. OXALIPLATIN. [Suspect]
     Active Substance: OXALIPLATIN
     Route: 065

REACTIONS (1)
  - Asphyxia [Unknown]
